FAERS Safety Report 4471534-9 (Version None)
Quarter: 2004Q4

REPORT INFORMATION
  Report Type: 
  Country: None (occurrence: None)
  Receive Date: 20041012
  Receipt Date: 20040914
  Transmission Date: 20050328
  Serious: Yes (Hospitalization)
  Sender: FDA-Public Use
  Company Number: DK-ABBOTT-04P-044-0276101-00

PATIENT
  Sex: Female

DRUGS (4)
  1. KLACID [Suspect]
     Indication: DUODENAL ULCER
     Route: 048
     Dates: start: 20030901
  2. KLACID [Suspect]
     Indication: HIATUS HERNIA
  3. AMOXICILLIN [Concomitant]
     Indication: DUODENAL ULCER
     Route: 048
     Dates: start: 20030901
  4. AMOXICILLIN [Concomitant]
     Indication: HIATUS HERNIA

REACTIONS (7)
  - ABDOMINAL PAIN [None]
  - FATIGUE [None]
  - HEPATITIS TOXIC [None]
  - PRURITUS [None]
  - SKIN IRRITATION [None]
  - UNEVALUABLE EVENT [None]
  - WEIGHT DECREASED [None]
